FAERS Safety Report 5643735-5 (Version None)
Quarter: 2008Q1

REPORT INFORMATION
  Report Type: 
  Country: None (occurrence: None)
  Receive Date: 20080228
  Receipt Date: 20080217
  Transmission Date: 20080703
  Serious: Yes (Other)
  Sender: FDA-Public Use
  Company Number: US-PFIZER INC-2008017308

PATIENT
  Sex: Female
  Weight: 118.18 kg

DRUGS (3)
  1. CHANTIX [Suspect]
     Indication: SMOKING CESSATION THERAPY
     Dosage: FREQ:EVERY DAY
     Route: 048
  2. TOPAMAX [Concomitant]
  3. XANAX [Concomitant]

REACTIONS (1)
  - HAEMATEMESIS [None]
